FAERS Safety Report 4297742-8 (Version None)
Quarter: 2004Q1

REPORT INFORMATION
  Report Type: 
  Country: None (occurrence: None)
  Receive Date: 20040126
  Receipt Date: 20031210
  Transmission Date: 20041129
  Serious: No
  Sender: FDA-Public Use
  Company Number: USA031151545

PATIENT
  Age: 12 Year
  Sex: Male
  Weight: 43 kg

DRUGS (1)
  1. STRATTERA [Suspect]
     Indication: ATTENTION DEFICIT/HYPERACTIVITY DISORDER
     Dosage: 60 MG/DAY
     Dates: start: 20030401, end: 20031101

REACTIONS (5)
  - DECREASED APPETITE [None]
  - MALAISE [None]
  - NAUSEA [None]
  - RETCHING [None]
  - WEIGHT DECREASED [None]
